FAERS Safety Report 4874980-4 (Version None)
Quarter: 2006Q1

REPORT INFORMATION
  Report Type: 
  Country: None (occurrence: None)
  Receive Date: 20060104
  Receipt Date: 20051221
  Transmission Date: 20060701
  Serious: Yes (Hospitalization)
  Sender: FDA-Public Use
  Company Number: 2005159603

PATIENT
  Age: 28 Year
  Sex: Male
  Weight: 90 kg

DRUGS (1)
  1. ZIPRASIDONE HCL [Suspect]
     Indication: SCHIZOPHRENIA
     Dosage: 160 MG *80 MG2 IN 1 D) ORAL
     Route: 048
     Dates: start: 20050801, end: 20051001

REACTIONS (8)
  - CONDITION AGGRAVATED [None]
  - DELIRIUM [None]
  - DRUG INEFFECTIVE [None]
  - HALLUCINATIONS, MIXED [None]
  - INSOMNIA [None]
  - PSYCHOTIC DISORDER [None]
  - SCHIZOPHRENIA [None]
  - SOCIAL AVOIDANT BEHAVIOUR [None]
